FAERS Safety Report 5563513-5 (Version None)
Quarter: 2007Q4

REPORT INFORMATION
  Report Type: 
  Country: None (occurrence: None)
  Receive Date: 20071217
  Receipt Date: 20070530
  Transmission Date: 20080405
  Serious: No
  Sender: FDA-Public Use
  Company Number: US-ASTRAZENECA-2007UW13217

PATIENT
  Age: 842 Month
  Sex: Female
  Weight: 53.2 kg

DRUGS (2)
  1. CRESTOR [Suspect]
     Indication: BLOOD CHOLESTEROL INCREASED
     Route: 048
     Dates: start: 20070501
  2. PROZAC [Concomitant]

REACTIONS (2)
  - DYSGEUSIA [None]
  - NAUSEA [None]
